FAERS Safety Report 21774679 (Version 1)
Quarter: 2022Q4

REPORT INFORMATION
  Report Type: Spontaneous
  Country: CH (occurrence: CH)
  Receive Date: 20221224
  Receipt Date: 20221224
  Transmission Date: 20230112
  Serious: Yes (Other)
  Sender: FDA-Public Use
  Company Number: CH-SM-2022-20560

PATIENT
  Age: 65 Year
  Sex: Female

DRUGS (20)
  1. CEFAZOLIN [Suspect]
     Active Substance: CEFAZOLIN
     Indication: Product used for unknown indication
     Dosage: 6 GRAM DAILY; CEFAZOLINE 05.09. UNTIL 06.09.22 3X 2G PER DAY INTRAVENOUS APPLICATION
     Route: 042
     Dates: start: 20220905, end: 20220906
  2. VANCOMYCIN [Suspect]
     Active Substance: VANCOMYCIN
     Indication: Product used for unknown indication
     Dosage: 2 GRAM DAILY; VANCOMYCIN 06.09. UNTIL 09/29/22 2X 1G PER DAY INTRAVENOUS APPLICATION
     Route: 042
     Dates: start: 20220906, end: 20220929
  3. CEFTRIAXONE [Suspect]
     Active Substance: CEFTRIAXONE
     Indication: Complication associated with device
     Dosage: 2 GRAM DAILY; CEFTRIAXONE 03.09. UNTIL 05.09.22 1X 2G PER DAY INTRAVENOUS APPLICATION AND FROM 27.09
     Route: 042
     Dates: start: 20220903, end: 20220905
  4. CEFTRIAXONE [Suspect]
     Active Substance: CEFTRIAXONE
     Indication: Complication associated with device
     Dosage: 2 GRAM DAILY; CEFTRIAXONE 03.09. UNTIL 05.09.22 1X 2G PER DAY INTRAVENOUS APPLICATION AND FROM 27.09
     Route: 042
     Dates: start: 20220927, end: 20220929
  5. IVERMECTIN [Suspect]
     Active Substance: IVERMECTIN
     Indication: Product used for unknown indication
     Dosage: IVERMECTIN (EXACT PREPARATION AND EXACT DOSAGE NOT KNOWN) ORAL INTAKE ON 08/29/2022 S, UNIT DOSE : 1
     Route: 048
     Dates: start: 20220829, end: 20220829
  6. IVERMECTIN [Suspect]
     Active Substance: IVERMECTIN
     Dosage: IVERMECTIN (EXACT PREPARATION AND EXACT DOSAGE NOT KNOWN) ORAL INTAKE ON 08/29/2022 S, UNIT DOSE : 1
     Route: 048
     Dates: start: 20220912, end: 20220912
  7. RIFAMPIN [Suspect]
     Active Substance: RIFAMPIN
     Indication: Product used for unknown indication
     Dosage: 900 MILLIGRAM DAILY; RIFAMPICIN LABATEC  (RIFAMPICIN) FROM 14.09. UNTIL 09/27/22 2X 450 MG PER DAY O
     Route: 048
     Dates: start: 20220914, end: 20220927
  8. RIFAMPIN [Suspect]
     Active Substance: RIFAMPIN
     Dosage: RIFAMPICIN LABATEC  (RIFAMPICIN) FROM 14.09. UNTIL 09/27/22 2X 450 MG PER DAY ORAL INTAKE AND, UNIT
     Route: 048
     Dates: start: 20221019, end: 20221019
  9. RIFAMPIN [Suspect]
     Active Substance: RIFAMPIN
     Dosage: RIFAMPICIN LABATEC  (RIFAMPICIN) FROM 14.09. UNTIL 09/27/22 2X 450 MG PER DAY ORAL INTAKE AND,  FREQ
     Route: 048
     Dates: start: 20221024, end: 20221024
  10. MEROPENEM [Concomitant]
     Active Substance: MEROPENEM
     Indication: Product used for unknown indication
     Dosage: 6 GRAM DAILY; MEROPENEM 2G 3X/DAY INTRAVENOUS APPLICATION FROM 09/29/2022 TO 10/04/2022, DURATION :
     Route: 042
     Dates: start: 20220929, end: 20221004
  11. DAPTOMYCIN [Concomitant]
     Active Substance: DAPTOMYCIN
     Indication: Product used for unknown indication
     Dosage: 750 MILLIGRAM DAILY; DAPTOMYCIN 750 MG 1X/DAY INTRAVENOUS APPLICATION FROM 09/29/2022 TO 10/24/2022,
     Route: 042
     Dates: start: 20220929, end: 20221024
  12. ESOMEPRAZOLE [Concomitant]
     Active Substance: ESOMEPRAZOLE
     Indication: Product used for unknown indication
     Dosage: ESOMEPRAZOLE 40 MG INTRAVENOUS APPLICATION UNTIL 09/2022, THEN SWITCH TO ORAL PANTOPRAZOLE, FREQUENC
     Route: 042
     Dates: end: 202209
  13. HEPARIN [Concomitant]
     Active Substance: HEPARIN SODIUM
     Indication: Product used for unknown indication
     Dosage: HEPARIN 15,000 IU/24H INTRAVENOUS APPLICATION, CHANGE TO CLEXANE  (ENOXAPARI, UNIT DOSE : 15000 IU,
     Route: 042
  14. EUTHYROX [Concomitant]
     Active Substance: LEVOTHYROXINE SODIUM
     Indication: Product used for unknown indication
     Dosage: EUTHYROX  (LEVOTHYROXIN) 0.05 MG 1.5-0-0-0, FREQUENCY TIME : 24  HOURS, UNIT DOSE :0.075 MG, ADDITIO
     Route: 048
  15. TRAZODONE HYDROCHLORIDE [Concomitant]
     Active Substance: TRAZODONE HYDROCHLORIDE
     Indication: Product used for unknown indication
     Dosage: 50 MILLIGRAM DAILY; TRITTICO  (TRAZODON) 50 MG 0-0-0-1, ADDITIONAL INFORMATION: ; ROUTE:048 COMEDICA
     Route: 048
  16. BUPRENORPHINE HYDROCHLORIDE [Concomitant]
     Active Substance: BUPRENORPHINE HYDROCHLORIDE
     Indication: Product used for unknown indication
     Route: 048
     Dates: end: 20221001
  17. METAMIZOLE [Concomitant]
     Active Substance: METAMIZOLE
     Indication: Product used for unknown indication
     Dosage: NOVALGIN  (METAMIZOL) INTRAVENOUS APPLICATION UNTIL THE END OF SEPTEMBER 2022, THEN CHANGE TO ORAL A
     Route: 042
     Dates: end: 202209
  18. METAMIZOLE [Concomitant]
     Active Substance: METAMIZOLE
     Dosage: NOVALGIN  (METAMIZOL) INTRAVENOUS APPLICATION UNTIL THE END OF SEPTEMBER 2022, THEN SWITCH TO ORAL A
     Route: 048
     Dates: start: 202209
  19. DAFALGAN [Concomitant]
     Active Substance: ACETAMINOPHEN
     Indication: Product used for unknown indication
     Dosage: 2000 MILLIGRAM DAILY; DAFALGAN  (PARACETAMOL) 500 MG 1-1-1-1, ADDITIONAL INFORMATION: ; ROUTE:048 CO
     Route: 048
  20. SODIUM PICOSULFATE [Concomitant]
     Active Substance: SODIUM PICOSULFATE
     Indication: Product used for unknown indication
     Dosage: LAXOBERON  (SODIUM PICOSULFATE) 8 DROPS PER DAY AS NEEDED; AS NECESSARY, UNIT DOSE :  8 GTT, FREQUEN
     Route: 048

REACTIONS (3)
  - Acute generalised exanthematous pustulosis [Recovering/Resolving]
  - Rash [Recovered/Resolved]
  - Pruritus [Recovered/Resolved]

NARRATIVE: CASE EVENT DATE: 20220928
